FAERS Safety Report 9155202 (Version 2)
Quarter: 2013Q4

REPORT INFORMATION
  Report Type: Spontaneous
  Country: GB (occurrence: GB)
  Receive Date: 20130311
  Receipt Date: 20131029
  Transmission Date: 20140711
  Serious: Yes (Death)
  Sender: FDA-Public Use
  Company Number: GB-WATSON-2013-03293

PATIENT
  Age: 71 Year
  Sex: Male

DRUGS (2)
  1. CLOPIDOGREL (UNKNOWN) [Suspect]
     Indication: PRODUCT USED FOR UNKNOWN INDICATION
     Dosage: UNK, UNKNOWN
     Route: 065
  2. OMEPRAZOLE (UNKNOWN) [Suspect]
     Indication: PRODUCT USED FOR UNKNOWN INDICATION
     Dosage: UNK, UNKNOWN
     Route: 065

REACTIONS (8)
  - Cardiac arrest [Fatal]
  - Acute myocardial infarction [Fatal]
  - Myocardial ischaemia [Fatal]
  - Hypertension [Fatal]
  - Drug interaction [Unknown]
  - Drug prescribing error [Unknown]
  - Drug ineffective [Unknown]
  - Coronary artery thrombosis [Not Recovered/Not Resolved]
